FAERS Safety Report 9822822 (Version 1)
Quarter: 2014Q1

REPORT INFORMATION
  Report Type: Spontaneous
  Country: PL (occurrence: PL)
  Receive Date: 20140116
  Receipt Date: 20140116
  Transmission Date: 20141002
  Serious: Yes (Hospitalization)
  Sender: FDA-Public Use
  Company Number: PHHY2014PL003127

PATIENT
  Age: 30 Year
  Sex: Female
  Weight: 75 kg

DRUGS (3)
  1. BROMERGON [Suspect]
     Indication: HYPERPROLACTINAEMIA
     Dosage: 5 MG, QD
     Route: 048
     Dates: start: 20130814, end: 20130816
  2. BETALOC ZOK ^ASTRA^ [Concomitant]
     Indication: HYPERTENSION
     Dosage: 25 MG, QD
     Route: 048
     Dates: start: 2012
  3. CO PRESTARIUM [Concomitant]
     Indication: HYPERTENSION
     Dosage: 10 MG, QD
     Route: 048
     Dates: start: 2012

REACTIONS (7)
  - Malaise [Unknown]
  - Cough [Unknown]
  - Asthenia [Unknown]
  - Obstructive airways disorder [Unknown]
  - Vomiting [Unknown]
  - Sinus tachycardia [Unknown]
  - Dizziness [Unknown]
